FAERS Safety Report 13333741 (Version 1)
Quarter: 2017Q1

REPORT INFORMATION
  Report Type: Spontaneous
  Country: GB (occurrence: GB)
  Receive Date: 20170314
  Receipt Date: 20170314
  Transmission Date: 20170428
  Serious: Yes (Disabling)
  Sender: FDA-Public Use
  Company Number: GB-PFIZER INC-2017103676

PATIENT
  Sex: Male

DRUGS (1)
  1. METHOTREXATE SODIUM. [Suspect]
     Active Substance: METHOTREXATE SODIUM
     Dosage: 2.5 MG, UNK (8 PER WEEK FOR 5 YEARS)

REACTIONS (4)
  - Musculoskeletal discomfort [Recovered/Resolved]
  - Product substitution issue [Unknown]
  - Limb discomfort [Recovered/Resolved]
  - Suspected counterfeit product [Unknown]
